FAERS Safety Report 6566017-6 (Version None)
Quarter: 2010Q1

REPORT INFORMATION
  Report Type: 
  Country: None (occurrence: None)
  Receive Date: 20100129
  Receipt Date: 20100129
  Transmission Date: 20100710
  Serious: Yes (Disabling)
  Sender: FDA-Public Use
  Company Number: None

PATIENT
  Sex: Female

DRUGS (2)
  1. DILANTIN [Suspect]
     Indication: CONVULSION
  2. PHENOBARBITAL [Suspect]

REACTIONS (2)
  - CARDIAC FAILURE CHRONIC [None]
  - DRUG EXPOSURE DURING PREGNANCY [None]
